FAERS Safety Report 7220475-2 (Version None)
Quarter: 2011Q1

REPORT INFORMATION
  Report Type: 
  Country: None (occurrence: None)
  Receive Date: 20110111
  Receipt Date: 20110105
  Transmission Date: 20110831
  Serious: Yes (Other)
  Sender: FDA-Public Use
  Company Number: GB-PERRIGO-11GB000007

PATIENT
  Age: 46 Year
  Sex: Male

DRUGS (7)
  1. IBUPROFEN [Suspect]
     Indication: ANALGESIC THERAPY
     Dosage: UNK
     Route: 048
  2. PARACETAMOL 16028/0012 500 MG [Suspect]
     Indication: ANALGESIC THERAPY
     Dosage: UNK
     Route: 048
  3. GINGER [Suspect]
     Indication: PRODUCT USED FOR UNKNOWN INDICATION
     Dosage: UNK
     Route: 048
  4. GINKO BILOBA [Suspect]
     Indication: PRODUCT USED FOR UNKNOWN INDICATION
     Dosage: UNK
     Route: 048
  5. VITAMINS NOS [Suspect]
     Indication: PRODUCT USED FOR UNKNOWN INDICATION
     Dosage: UNK
     Route: 048
  6. GARLIC POWDER 16028/0058 150 MG [Suspect]
     Indication: PRODUCT USED FOR UNKNOWN INDICATION
     Dosage: UNK
     Route: 048
  7. GINSENG [Suspect]
     Indication: PRODUCT USED FOR UNKNOWN INDICATION
     Dosage: UNK
     Route: 048

REACTIONS (2)
  - DRUG INTERACTION [None]
  - POST PROCEDURAL HAEMORRHAGE [None]
